FAERS Safety Report 7043634-0 (Version None)
Quarter: 2010Q4

REPORT INFORMATION
  Report Type: 
  Country: None (occurrence: None)
  Receive Date: 20101013
  Receipt Date: 20101004
  Transmission Date: 20110411
  Serious: Yes (Other)
  Sender: FDA-Public Use
  Company Number: B0678715A

PATIENT
  Age: 52 Year
  Sex: Male

DRUGS (2)
  1. AVAMYS [Suspect]
     Dosage: 110MCG PER DAY
     Route: 065
     Dates: start: 20100701
  2. AMLODIPINE [Concomitant]
     Indication: HYPERTENSION

REACTIONS (1)
  - ANOSMIA [None]
